FAERS Safety Report 24280927 (Version 2)
Quarter: 2024Q3

REPORT INFORMATION
  Report Type: Spontaneous
  Country: US (occurrence: US)
  Receive Date: 20240904
  Receipt Date: 20240912
  Transmission Date: 20241016
  Serious: Yes (Hospitalization, Other)
  Sender: ALKEM
  Company Number: US-ALKEM LABORATORIES LIMITED-US-ALKEM-2024-20268

PATIENT
  Age: 16 Year
  Sex: Female
  Weight: 34 kg

DRUGS (19)
  1. CLOBAZAM [Interacting]
     Active Substance: CLOBAZAM
     Indication: Developmental delay
     Dosage: 5 MILLIGRAM
     Route: 065
  2. CLOBAZAM [Interacting]
     Active Substance: CLOBAZAM
     Indication: Schizencephaly
     Dosage: 7.5 MILLIGRAM, QD
     Route: 065
  3. CLOBAZAM [Interacting]
     Active Substance: CLOBAZAM
     Indication: Device malfunction
     Dosage: 12.5 MILLIGRAM, QD
     Route: 065
  4. CLOBAZAM [Interacting]
     Active Substance: CLOBAZAM
     Indication: Seizure
  5. LEVETIRACETAM [Suspect]
     Active Substance: LEVETIRACETAM
     Indication: Developmental delay
     Dosage: 1000 MILLIGRAM (MORNING)
     Route: 065
  6. LEVETIRACETAM [Suspect]
     Active Substance: LEVETIRACETAM
     Indication: Schizencephaly
     Dosage: 1500 MILLIGRAM (EVENING 73 MG/ KG/DAY)
     Route: 065
  7. LEVETIRACETAM [Suspect]
     Active Substance: LEVETIRACETAM
     Indication: Device malfunction
  8. LEVETIRACETAM [Suspect]
     Active Substance: LEVETIRACETAM
     Indication: Seizure
  9. OXCARBAZEPINE [Interacting]
     Active Substance: OXCARBAZEPINE
     Indication: Developmental delay
     Dosage: UNK
     Route: 065
  10. OXCARBAZEPINE [Interacting]
     Active Substance: OXCARBAZEPINE
     Indication: Schizencephaly
     Dosage: 26 MILLIGRAM/KILOGRAM, QD (TITRATED TO 450 MG BY MOUTH EVERY 12 HOURS)
     Route: 048
  11. OXCARBAZEPINE [Interacting]
     Active Substance: OXCARBAZEPINE
     Indication: Device malfunction
     Dosage: 18 MILLIGRAM/KILOGRAM, QD (300 MG EVERY 12 HOURS)
     Route: 065
  12. OXCARBAZEPINE [Interacting]
     Active Substance: OXCARBAZEPINE
     Indication: Seizure
  13. OMEPRAZOLE [Suspect]
     Active Substance: OMEPRAZOLE
     Indication: Developmental delay
     Dosage: 20 MILLIGRAM, QD
     Route: 065
  14. OMEPRAZOLE [Suspect]
     Active Substance: OMEPRAZOLE
     Indication: Schizencephaly
  15. OMEPRAZOLE [Suspect]
     Active Substance: OMEPRAZOLE
     Indication: Device malfunction
  16. OMEPRAZOLE [Suspect]
     Active Substance: OMEPRAZOLE
     Indication: Seizure
  17. PANTOPRAZOLE [Concomitant]
     Active Substance: PANTOPRAZOLE
     Indication: Product used for unknown indication
     Dosage: UNK
     Route: 065
  18. PIPERACILLIN AND TAZOBACTAM [Concomitant]
     Active Substance: PIPERACILLIN SODIUM\TAZOBACTAM SODIUM
     Indication: Urinary tract infection
     Dosage: 3.4 GRAM, TID
     Route: 065
  19. VANCOMYCIN [Concomitant]
     Active Substance: VANCOMYCIN
     Indication: Urinary tract infection
     Dosage: 700 MILLIGRAM (20 MILLIGRAM/KILOGRAM EVERY 6 HOURS)
     Route: 065

REACTIONS (5)
  - Hypothermia [Unknown]
  - Drug level increased [Unknown]
  - Toxicity to various agents [Unknown]
  - Drug interaction [Unknown]
  - Drug ineffective [Recovering/Resolving]
